FAERS Safety Report 16186018 (Version 2)
Quarter: 2019Q2

REPORT INFORMATION
  Report Type: Spontaneous
  Country: US (occurrence: US)
  Receive Date: 20190411
  Receipt Date: 20190514
  Transmission Date: 20190711
  Serious: No
  Sender: FDA-Public Use
  Company Number: US-ELI_LILLY_AND_COMPANY-US201903015452

PATIENT
  Sex: Female

DRUGS (4)
  1. GALCANEZUMAB [Suspect]
     Active Substance: GALCANEZUMAB
     Dosage: UNK
     Route: 065
  2. ZOMIG [Concomitant]
     Active Substance: ZOLMITRIPTAN
  3. TYLENOL [Concomitant]
     Active Substance: ACETAMINOPHEN
  4. GALCANEZUMAB [Suspect]
     Active Substance: GALCANEZUMAB
     Indication: PRODUCT USED FOR UNKNOWN INDICATION
     Dosage: UNK UNK, UNKNOWN
     Route: 058
     Dates: start: 201901

REACTIONS (4)
  - Drug ineffective [Unknown]
  - Injection site bruising [Unknown]
  - Injection site pain [Unknown]
  - Thinking abnormal [Not Recovered/Not Resolved]
